FAERS Safety Report 5245064-0 (Version None)
Quarter: 2007Q1

REPORT INFORMATION
  Report Type: 
  Country: None (occurrence: None)
  Receive Date: 20070223
  Receipt Date: 20070212
  Transmission Date: 20070707
  Serious: Yes (Hospitalization)
  Sender: FDA-Public Use
  Company Number: FR-JNJFOC-20070202632

PATIENT
  Age: 24 Year
  Sex: Female

DRUGS (5)
  1. TRAMADOL HCL [Suspect]
     Indication: PAIN
     Route: 065
  2. MYOLASTAM [Concomitant]
     Route: 048
  3. PRAZEPAM [Concomitant]
     Route: 048
  4. VENTOLIN [Concomitant]
     Route: 065
  5. DAFALGAN [Concomitant]
     Route: 048

REACTIONS (5)
  - HEADACHE [None]
  - NAUSEA [None]
  - RESPIRATORY DEPRESSION [None]
  - TACHYPNOEA [None]
  - VERTIGO [None]
